FAERS Safety Report 25708507 (Version 1)
Quarter: 2025Q3

REPORT INFORMATION
  Report Type: Report from Study
  Country: US (occurrence: US)
  Receive Date: 20250821
  Receipt Date: 20250821
  Transmission Date: 20251020
  Serious: Yes (Other)
  Sender: ABBVIE
  Company Number: US-ABBVIE-6374159

PATIENT
  Age: 77 Year
  Sex: Female
  Weight: 76 kg

DRUGS (8)
  1. SKYRIZI [Suspect]
     Active Substance: RISANKIZUMAB-RZAA
     Indication: Psoriasis
     Route: 058
     Dates: start: 2018, end: 2019
  2. SKYRIZI [Suspect]
     Active Substance: RISANKIZUMAB-RZAA
     Indication: Psoriatic arthropathy
     Dosage: FORM STRENGTH: 150 MILLIGRAM
     Route: 058
     Dates: start: 20250715
  3. HYDROCHLOROTHIAZIDE\TRIAMTERENE [Concomitant]
     Active Substance: HYDROCHLOROTHIAZIDE\TRIAMTERENE
     Indication: Hypertension
  4. FLONASE [Concomitant]
     Active Substance: FLUTICASONE PROPIONATE
     Indication: Multiple allergies
  5. EZETIMIBE [Concomitant]
     Active Substance: EZETIMIBE
     Indication: Blood cholesterol increased
  6. ESCITALOPRAM [Concomitant]
     Active Substance: ESCITALOPRAM OXALATE
     Indication: Depression
  7. PEPCID COMPLETE [Concomitant]
     Active Substance: CALCIUM CARBONATE\FAMOTIDINE\MAGNESIUM HYDROXIDE
     Indication: Gastrooesophageal reflux disease
  8. LEVOTHYROXINE [Concomitant]
     Active Substance: LEVOTHYROXINE
     Indication: Hypothyroidism

REACTIONS (14)
  - Hand fracture [Recovering/Resolving]
  - Scar [Recovered/Resolved]
  - Illness [Unknown]
  - COVID-19 [Recovered/Resolved]
  - Tinnitus [Recovering/Resolving]
  - Complex regional pain syndrome [Recovering/Resolving]
  - Arthralgia [Recovering/Resolving]
  - Psoriasis [Recovering/Resolving]
  - Cough [Recovering/Resolving]
  - Myalgia [Recovering/Resolving]
  - Interstitial lung disease [Recovering/Resolving]
  - Psoriatic arthropathy [Recovering/Resolving]
  - Fall [Unknown]
  - Nasal congestion [Recovering/Resolving]

NARRATIVE: CASE EVENT DATE: 20241201
